FAERS Safety Report 7987633-0 (Version None)
Quarter: 2011Q4

REPORT INFORMATION
  Report Type: 
  Country: None (occurrence: None)
  Receive Date: 20111216
  Receipt Date: 20101103
  Transmission Date: 20120403
  Serious: No
  Sender: FDA-Public Use
  Company Number: US-BRISTOL-MYERS SQUIBB COMPANY-15312739

PATIENT
  Age: 49 Year
  Sex: Female

DRUGS (6)
  1. ABILIFY [Suspect]
     Indication: DEPRESSION
     Dosage: 2DF:2 TABS
     Route: 048
     Dates: start: 20100903
  2. FEXOFENADINE HCL [Concomitant]
  3. CONTRACEPTIVE [Concomitant]
  4. POTASSIUM CHLORIDE [Concomitant]
  5. ZOLOFT [Concomitant]
  6. TOPAMAX [Concomitant]

REACTIONS (2)
  - DRY MOUTH [None]
  - GLOSSODYNIA [None]
